FAERS Safety Report 5114784-0 (Version None)
Quarter: 2006Q3

REPORT INFORMATION
  Report Type: 
  Country: None (occurrence: None)
  Receive Date: 20060922
  Receipt Date: 20060901
  Transmission Date: 20061208
  Serious: Yes (Hospitalization, Other)
  Sender: FDA-Public Use
  Company Number: 2006-06-2365

PATIENT
  Age: 42 Year
  Sex: Female
  Weight: 83.9154 kg

DRUGS (10)
  1. PEG-INTRON [Suspect]
     Indication: HEPATITIS C
     Dosage: SC
     Route: 058
     Dates: start: 20060607
  2. REBETOL [Suspect]
     Indication: HEPATITIS C
     Dosage: PO
     Route: 048
     Dates: start: 20060607
  3. LITHIUM CARBONATE [Concomitant]
  4. MAXALT [Concomitant]
  5. NEURONTIN [Concomitant]
  6. REGLAN [Concomitant]
  7. ROZEREM [Concomitant]
  8. XANAX [Concomitant]
  9. ZOLOFT [Concomitant]
  10. SEROQUEL [Concomitant]

REACTIONS (25)
  - ALOPECIA [None]
  - ARTHRALGIA [None]
  - ASTHENIA [None]
  - BLOOD POTASSIUM DECREASED [None]
  - BONE PAIN [None]
  - CHILLS [None]
  - DISTURBANCE IN ATTENTION [None]
  - DRUG DOSE OMISSION [None]
  - DRUG INEFFECTIVE [None]
  - EATING DISORDER [None]
  - GASTRIC DISORDER [None]
  - HYPERSOMNIA [None]
  - HYPOTRICHOSIS [None]
  - INFLUENZA LIKE ILLNESS [None]
  - INJECTION SITE BRUISING [None]
  - MEMORY IMPAIRMENT [None]
  - MIGRAINE [None]
  - NAUSEA [None]
  - PAIN [None]
  - PANCREATITIS [None]
  - PELVIC PAIN [None]
  - PHOTOSENSITIVITY REACTION [None]
  - PYREXIA [None]
  - VOMITING [None]
  - WEIGHT DECREASED [None]
